FAERS Safety Report 10403044 (Version 1)
Quarter: 2014Q3

REPORT INFORMATION
  Report Type: Spontaneous
  Country: US (occurrence: US)
  Receive Date: 20140822
  Receipt Date: 20140822
  Transmission Date: 20150326
  Serious: Yes (Death, Hospitalization)
  Sender: FDA-Public Use
  Company Number: US-B.I. PHARMACEUTICALS,INC./RIDGEFIELD-2014-BI-38435BP

PATIENT
  Age: 59 Year
  Sex: Male
  Weight: 110 kg

DRUGS (8)
  1. HYDRALAZINE [Concomitant]
     Active Substance: HYDRALAZINE HYDROCHLORIDE
     Dosage: 400 MG
     Route: 048
  2. LABETALOL [Concomitant]
     Active Substance: LABETALOL\LABETALOL HYDROCHLORIDE
     Dosage: 1200 MG
     Route: 048
  3. TOSEMIDE [Concomitant]
     Dosage: 80 MG
     Route: 048
  4. PROCARDIA XL [Concomitant]
     Active Substance: NIFEDIPINE
     Dosage: 90 MG
     Route: 048
  5. PRADAXA [Suspect]
     Active Substance: DABIGATRAN ETEXILATE MESYLATE
     Indication: ATRIAL FIBRILLATION
     Dosage: 300 MG
     Route: 048
     Dates: end: 201110
  6. CLONIDINE. [Concomitant]
     Active Substance: CLONIDINE
     Dosage: 0.4 MG
     Route: 048
  7. COREG [Concomitant]
     Active Substance: CARVEDILOL
     Route: 065
  8. DIGOXIN. [Concomitant]
     Active Substance: DIGOXIN
     Dosage: 0.25 MG
     Route: 048

REACTIONS (6)
  - Sepsis [Fatal]
  - Pneumonia [Fatal]
  - Cardiac failure congestive [Not Recovered/Not Resolved]
  - Haematoma [Unknown]
  - Renal failure acute [Not Recovered/Not Resolved]
  - Respiratory failure [Not Recovered/Not Resolved]

NARRATIVE: CASE EVENT DATE: 20110831
